FAERS Safety Report 6683925-6 (Version None)
Quarter: 2010Q2

REPORT INFORMATION
  Report Type: 
  Country: None (occurrence: None)
  Receive Date: 20100416
  Receipt Date: 20100407
  Transmission Date: 20101027
  Serious: Yes (Other)
  Sender: FDA-Public Use
  Company Number: JP-PFIZER INC-2010045052

PATIENT

DRUGS (1)
  1. SOLU-CORTEF [Suspect]
     Indication: ASTHMA
     Dosage: UNK
     Route: 042

REACTIONS (1)
  - ASTHMA [None]
